FAERS Safety Report 6310162-7 (Version None)
Quarter: 2009Q3

REPORT INFORMATION
  Report Type: 
  Country: None (occurrence: None)
  Receive Date: 20090814
  Receipt Date: 20090804
  Transmission Date: 20100115
  Serious: Yes (Hospitalization)
  Sender: FDA-Public Use
  Company Number: US-CELGENEUS-163-50794-09070167

PATIENT
  Sex: Male

DRUGS (2)
  1. VIDAZA [Suspect]
     Route: 051
  2. VIDAZA [Suspect]
     Route: 058

REACTIONS (3)
  - CEREBROVASCULAR ACCIDENT [None]
  - PYREXIA [None]
  - TREMOR [None]
